FAERS Safety Report 5491536-3 (Version None)
Quarter: 2007Q4

REPORT INFORMATION
  Report Type: 
  Country: None (occurrence: None)
  Receive Date: 20071022
  Receipt Date: 20071015
  Transmission Date: 20080405
  Serious: Yes (Hospitalization)
  Sender: FDA-Public Use
  Company Number: US-SP-2007-01781

PATIENT
  Age: 81 Year
  Sex: Male

DRUGS (10)
  1. THERACYS [Suspect]
     Indication: BLADDER CANCER
     Route: 043
     Dates: start: 20070228
  2. THERACYS [Suspect]
     Route: 043
     Dates: start: 20070228
  3. THERACYS [Suspect]
     Route: 043
     Dates: start: 20070228
  4. THERACYS [Suspect]
     Route: 043
     Dates: start: 20070228
  5. ASPIRIN [Concomitant]
  6. IRON [Concomitant]
  7. LIPITOR [Concomitant]
  8. POTASSIUM CHLORIDE [Concomitant]
  9. TERAZOSIN HCL [Concomitant]
  10. ZETIA [Concomitant]

REACTIONS (15)
  - ANAEMIA [None]
  - ANOREXIA [None]
  - BOVINE TUBERCULOSIS [None]
  - CHILLS [None]
  - DEPRESSION [None]
  - FATIGUE [None]
  - LUNG NEOPLASM [None]
  - METASTATIC NEOPLASM [None]
  - NEUTROPENIA [None]
  - NIGHT SWEATS [None]
  - OEDEMA PERIPHERAL [None]
  - PLEURAL EFFUSION [None]
  - PYREXIA [None]
  - THROMBOCYTOPENIA [None]
  - WEIGHT DECREASED [None]
